FAERS Safety Report 8983721 (Version 4)
Quarter: 2013Q2

REPORT INFORMATION
  Report Type: Spontaneous
  Country: AU (occurrence: AU)
  Receive Date: 20121224
  Receipt Date: 20130415
  Transmission Date: 20140414
  Serious: Yes (Other)
  Sender: FDA-Public Use
  Company Number: PHHY2012AU114726

PATIENT
  Age: 70 Year
  Sex: Male

DRUGS (2)
  1. SANDOSTATIN LAR [Suspect]
     Indication: ACROMEGALY
     Dosage: 20 MG, UNK
     Route: 030
  2. WARFARIN [Concomitant]

REACTIONS (7)
  - Renal cancer [Recovering/Resolving]
  - Benign renal neoplasm [Recovering/Resolving]
  - Atrial fibrillation [Recovering/Resolving]
  - Blood urine present [Recovered/Resolved]
  - Insomnia [Recovering/Resolving]
  - Anxiety [Recovering/Resolving]
  - Memory impairment [Recovering/Resolving]
